FAERS Safety Report 6732786-5 (Version None)
Quarter: 2010Q2

REPORT INFORMATION
  Report Type: 
  Country: None (occurrence: None)
  Receive Date: 20100519
  Receipt Date: 20100511
  Transmission Date: 20101027
  Serious: Yes (Other)
  Sender: FDA-Public Use
  Company Number: DE-AMGEN-UK365225

PATIENT
  Sex: Female
  Weight: 76 kg

DRUGS (4)
  1. NEUPOGEN [Suspect]
     Indication: BLOOD STEM CELL HARVEST
     Route: 058
     Dates: start: 20090205, end: 20090209
  2. IBUPROFEN [Concomitant]
     Route: 065
  3. LEVOTHYROXINE SODIUM [Concomitant]
     Route: 065
  4. BISOPROLOL FUMARATE [Concomitant]
     Route: 065

REACTIONS (13)
  - ALOPECIA [None]
  - ARTHRALGIA [None]
  - BONE PAIN [None]
  - CIRCULATORY COLLAPSE [None]
  - DEPRESSION [None]
  - FATIGUE [None]
  - HEADACHE [None]
  - JOINT SWELLING [None]
  - LYME DISEASE [None]
  - MUSCULOSKELETAL PAIN [None]
  - MYALGIA [None]
  - OSTEOARTHRITIS [None]
  - PAIN IN EXTREMITY [None]
